FAERS Safety Report 9211286 (Version 2)
Quarter: 2013Q4

REPORT INFORMATION
  Report Type: Spontaneous
  Country: US (occurrence: US)
  Receive Date: 20130404
  Receipt Date: 20131106
  Transmission Date: 20140711
  Serious: No
  Sender: FDA-Public Use
  Company Number: US-AMGEN-USASP2013014998

PATIENT
  Age: 55 Year
  Sex: Female
  Weight: 49.89 kg

DRUGS (6)
  1. ENBREL [Suspect]
     Indication: PRODUCT USED FOR UNKNOWN INDICATION
     Dosage: 50 MG, WEEKLY
     Route: 058
     Dates: start: 201302
  2. ACYCLOVIR                          /00587301/ [Concomitant]
     Dosage: 400 MG, UNK
  3. PREDNISONE [Concomitant]
     Dosage: 1 MG, UNK
  4. CALCIUM +D                         /00944201/ [Concomitant]
     Dosage: UNK
  5. VITAMIN D                          /00107901/ [Concomitant]
     Dosage: 400 UNIT, UNK
  6. MULTIVITAMINS, PLAIN [Concomitant]
     Dosage: UNK

REACTIONS (4)
  - Injection site erythema [Unknown]
  - Injection site pruritus [Not Recovered/Not Resolved]
  - Injection site warmth [Unknown]
  - Injection site reaction [Unknown]
